FAERS Safety Report 8378708-5 (Version None)
Quarter: 2012Q2

REPORT INFORMATION
  Report Type: 
  Country: None (occurrence: None)
  Receive Date: 20120522
  Receipt Date: 20120515
  Transmission Date: 20120825
  Serious: Yes (Hospitalization, Other)
  Sender: FDA-Public Use
  Company Number: US-MERCK-1107USA03283

PATIENT
  Age: 57 Year
  Sex: Female
  Weight: 77 kg

DRUGS (10)
  1. FOSAMAX [Suspect]
     Route: 048
     Dates: start: 20010501
  2. FOSAMAX [Suspect]
     Route: 048
     Dates: start: 20080403, end: 20090901
  3. MAXALT [Concomitant]
     Route: 048
  4. FOSAMAX [Suspect]
     Indication: OSTEOPENIA
     Route: 048
     Dates: start: 20010501, end: 20080301
  5. ASCORBIC ACID [Concomitant]
     Route: 065
     Dates: start: 20010101
  6. DOXEPIN HYDROCHLORIDE [Concomitant]
     Indication: MIGRAINE PROPHYLAXIS
     Route: 065
     Dates: start: 19931001
  7. RYNATAN (AZATADINE MALEATE (+) PSEUDOEPHEDRINE SULFATE) [Concomitant]
     Indication: HYPERSENSITIVITY
     Route: 065
     Dates: start: 20010627
  8. CALCIUM (UNSPECIFIED) [Concomitant]
     Route: 065
     Dates: start: 20010101
  9. VITAMINS (UNSPECIFIED) [Concomitant]
     Route: 065
     Dates: start: 20010101
  10. VITAMIN D (UNSPECIFIED) [Concomitant]
     Route: 065
     Dates: start: 20010101

REACTIONS (77)
  - OSTEOARTHRITIS [None]
  - PNEUMONIA [None]
  - LARYNGITIS [None]
  - CHEST DISCOMFORT [None]
  - DENTAL CARIES [None]
  - BLOOD CHOLESTEROL INCREASED [None]
  - HAEMATOMA [None]
  - ORTHOPNOEA [None]
  - MITRAL VALVE INCOMPETENCE [None]
  - PULMONARY EMBOLISM [None]
  - CONTUSION [None]
  - PALMAR-PLANTAR ERYTHRODYSAESTHESIA SYNDROME [None]
  - MULTIPLE LENTIGINES SYNDROME [None]
  - MITRAL VALVE PROLAPSE [None]
  - ATELECTASIS [None]
  - CONJUNCTIVITIS [None]
  - FOOT FRACTURE [None]
  - RHINITIS ALLERGIC [None]
  - RASH [None]
  - PULMONARY HYPERTENSION [None]
  - TENOSYNOVITIS [None]
  - INFLUENZA [None]
  - ANXIETY [None]
  - LUNG INFILTRATION [None]
  - FALL [None]
  - OVERDOSE [None]
  - DRUG INEFFECTIVE [None]
  - DEPRESSION [None]
  - SKIN ULCER [None]
  - VOMITING [None]
  - LIMB ASYMMETRY [None]
  - TOOTH FRACTURE [None]
  - OBESITY [None]
  - LOW TURNOVER OSTEOPATHY [None]
  - IRON DEFICIENCY ANAEMIA [None]
  - HYPERLIPIDAEMIA [None]
  - FATIGUE [None]
  - PNEUMONITIS [None]
  - DEAFNESS NEUROSENSORY [None]
  - DIABETES MELLITUS [None]
  - GINGIVAL PAIN [None]
  - SCIATICA [None]
  - RIB FRACTURE [None]
  - URINARY TRACT INFECTION [None]
  - VERTIGO [None]
  - TRIGGER FINGER [None]
  - TOOTH DISORDER [None]
  - OSTEOPOROSIS [None]
  - ARTHRALGIA [None]
  - EUSTACHIAN TUBE DYSFUNCTION [None]
  - CAMPBELL DE MORGAN SPOTS [None]
  - MENISCUS LESION [None]
  - BACK PAIN [None]
  - COLONIC POLYP [None]
  - HEADACHE [None]
  - HYPERCHOLESTEROLAEMIA [None]
  - GINGIVAL BLEEDING [None]
  - GASTROOESOPHAGEAL REFLUX DISEASE [None]
  - TENDONITIS [None]
  - SINUS CONGESTION [None]
  - INSOMNIA [None]
  - LIMB INJURY [None]
  - EPISTAXIS [None]
  - COUGH [None]
  - FEMUR FRACTURE [None]
  - ACTINIC KERATOSIS [None]
  - BLISTER [None]
  - BRONCHITIS [None]
  - DENTAL DISCOMFORT [None]
  - COSTOCHONDRITIS [None]
  - SEBORRHOEIC KERATOSIS [None]
  - VENOUS INSUFFICIENCY [None]
  - POLYARTHRITIS [None]
  - PLEURISY [None]
  - BACK INJURY [None]
  - ACUTE SINUSITIS [None]
  - ADVERSE DRUG REACTION [None]
